FAERS Safety Report 12370529 (Version 6)
Quarter: 2019Q4

REPORT INFORMATION
  Report Type: Spontaneous
  Country: CA (occurrence: CA)
  Receive Date: 20160516
  Receipt Date: 20191120
  Transmission Date: 20200122
  Serious: Yes (Death, Hospitalization, Disabling, Other)
  Sender: FDA-Public Use
  Company Number: PHHY2016CA032800

PATIENT
  Age: 62 Year
  Sex: Male
  Weight: 92 kg

DRUGS (41)
  1. LINEZOLID. [Suspect]
     Active Substance: LINEZOLID
     Indication: SEPSIS
     Dosage: 600 MG, BID
     Route: 048
  2. TIGECYCLINE. [Suspect]
     Active Substance: TIGECYCLINE
     Indication: OSTEOMYELITIS
     Dosage: 100 MG, ONCE/SINGLE
     Route: 042
     Dates: start: 20160314, end: 20160314
  3. RIFAMPIN. [Suspect]
     Active Substance: RIFAMPIN
     Indication: INTERVERTEBRAL DISCITIS
     Dosage: 300 MG, BID
     Route: 065
  4. CEFTAROLINE FOSAMIL ACETATE [Suspect]
     Active Substance: CEFTAROLINE FOSAMIL
     Indication: OSTEOMYELITIS
     Dosage: 300 MG, Q12H
     Route: 042
     Dates: start: 20160322, end: 20160401
  5. CUBICIN [Suspect]
     Active Substance: DAPTOMYCIN
     Indication: INADEQUATE DIET
     Dosage: 700 MG, QD
     Route: 042
  6. CUBICIN [Suspect]
     Active Substance: DAPTOMYCIN
     Dosage: 900 MG, QD
     Route: 042
  7. DOXYCYCLINE. [Suspect]
     Active Substance: DOXYCYCLINE
     Indication: INTERVERTEBRAL DISCITIS
     Dosage: 100 MG, BID
     Route: 048
  8. CUBICIN [Suspect]
     Active Substance: DAPTOMYCIN
     Indication: INTERVERTEBRAL DISCITIS
     Dosage: 700 MG, QD (APPROX 8 MG/KG)
     Route: 042
     Dates: start: 20160122, end: 20160226
  9. CUBICIN [Suspect]
     Active Substance: DAPTOMYCIN
     Indication: BURKHOLDERIA CEPACIA COMPLEX INFECTION
     Dosage: 900 MG, QD
     Route: 042
  10. LINEZOLID. [Suspect]
     Active Substance: LINEZOLID
     Indication: INTERVERTEBRAL DISCITIS
     Dosage: 600 MG, BID
     Route: 048
  11. DOXYCYCLINE. [Suspect]
     Active Substance: DOXYCYCLINE
     Indication: OSTEOMYELITIS
     Dosage: 100 MG, BID
     Route: 048
     Dates: start: 20160229, end: 20160314
  12. DOXYCYCLINE. [Suspect]
     Active Substance: DOXYCYCLINE
     Indication: PARASPINAL ABSCESS
     Dosage: 100 MG, BID
     Route: 048
  13. TIGECYCLINE. [Suspect]
     Active Substance: TIGECYCLINE
     Indication: INADEQUATE DIET
     Dosage: 50 MG, BID
     Route: 042
  14. TIGECYCLINE. [Suspect]
     Active Substance: TIGECYCLINE
     Indication: BURKHOLDERIA CEPACIA COMPLEX INFECTION
     Dosage: 50 MG, BID
     Route: 042
  15. CUBICIN [Suspect]
     Active Substance: DAPTOMYCIN
     Dosage: 700 MG, QD
     Route: 042
  16. VANCOMYCIN [Suspect]
     Active Substance: VANCOMYCIN
     Indication: PARASPINAL ABSCESS
  17. VANCOMYCIN [Suspect]
     Active Substance: VANCOMYCIN
     Indication: INADEQUATE DIET
  18. RIFAMPIN. [Suspect]
     Active Substance: RIFAMPIN
     Indication: BURKHOLDERIA CEPACIA COMPLEX INFECTION
  19. CUBICIN [Suspect]
     Active Substance: DAPTOMYCIN
     Indication: PARASPINAL ABSCESS
     Dosage: UNK UNK, QD
     Route: 042
  20. CUBICIN [Suspect]
     Active Substance: DAPTOMYCIN
     Indication: SEPSIS
     Dosage: UNK, QD
     Route: 065
  21. LINEZOLID. [Suspect]
     Active Substance: LINEZOLID
     Indication: INADEQUATE DIET
  22. DOXYCYCLINE. [Suspect]
     Active Substance: DOXYCYCLINE
     Indication: OESOPHAGEAL ABSCESS
  23. RIFAMPIN. [Suspect]
     Active Substance: RIFAMPIN
     Indication: INADEQUATE DIET
  24. CEFTAROLINE FOSAMIL ACETATE [Suspect]
     Active Substance: CEFTAROLINE FOSAMIL
     Indication: PARASPINAL ABSCESS
     Dosage: 300 MG
     Route: 042
  25. VANCOMYCIN [Suspect]
     Active Substance: VANCOMYCIN
     Indication: OSTEOMYELITIS
     Dosage: TARGET TROUGH 15-20 MG/L
     Route: 042
     Dates: start: 20151127, end: 20160120
  26. VANCOMYCIN [Suspect]
     Active Substance: VANCOMYCIN
     Indication: INTERVERTEBRAL DISCITIS
  27. TIGECYCLINE. [Suspect]
     Active Substance: TIGECYCLINE
     Indication: INTERVERTEBRAL DISCITIS
     Dosage: 50 MG, BID
     Route: 042
     Dates: start: 201603, end: 20160322
  28. RIFAMPIN. [Suspect]
     Active Substance: RIFAMPIN
     Indication: OSTEOMYELITIS
     Dosage: 300 MG, BID
     Route: 048
     Dates: start: 20160314, end: 20160322
  29. RIFAMPIN. [Suspect]
     Active Substance: RIFAMPIN
     Indication: PARASPINAL ABSCESS
     Dosage: 300 MG, BID
     Route: 048
  30. CEFTAROLINE FOSAMIL ACETATE [Suspect]
     Active Substance: CEFTAROLINE FOSAMIL
     Indication: INTERVERTEBRAL DISCITIS
     Dosage: 300 MG, BID
     Route: 042
  31. CEFTAROLINE FOSAMIL ACETATE [Suspect]
     Active Substance: CEFTAROLINE FOSAMIL
     Dosage: 300 MG, Q12H
     Route: 042
  32. CUBICIN [Suspect]
     Active Substance: DAPTOMYCIN
     Indication: OSTEOMYELITIS
     Dosage: 900 MG, QD (APPROX 10 MG/KG)
     Route: 042
     Dates: start: 20160120, end: 20160121
  33. VANCOMYCIN [Suspect]
     Active Substance: VANCOMYCIN
     Indication: BURKHOLDERIA CEPACIA COMPLEX INFECTION
  34. LINEZOLID. [Suspect]
     Active Substance: LINEZOLID
     Indication: PARASPINAL ABSCESS
     Dosage: 600 MG, BID
     Route: 048
  35. LINEZOLID. [Suspect]
     Active Substance: LINEZOLID
     Indication: BURKHOLDERIA CEPACIA COMPLEX INFECTION
  36. TIGECYCLINE. [Suspect]
     Active Substance: TIGECYCLINE
     Indication: PARASPINAL ABSCESS
     Dosage: 100 MG, QD
     Route: 042
  37. VANCOMYCIN [Suspect]
     Active Substance: VANCOMYCIN
     Indication: SEPSIS
  38. LINEZOLID. [Suspect]
     Active Substance: LINEZOLID
     Indication: OSTEOMYELITIS
     Dosage: 600 MG, BID
     Route: 048
     Dates: start: 20160226, end: 20160314
  39. TIGECYCLINE. [Suspect]
     Active Substance: TIGECYCLINE
     Indication: SEPSIS
     Dosage: 100 MG
     Route: 042
  40. TIGECYCLINE. [Suspect]
     Active Substance: TIGECYCLINE
     Dosage: 50 MG, BID
     Route: 042
  41. RIFAMPIN. [Suspect]
     Active Substance: RIFAMPIN
     Indication: SEPSIS
     Dosage: 300 MG, BID
     Route: 048

REACTIONS (6)
  - General physical health deterioration [Fatal]
  - Treatment failure [Unknown]
  - Thrombocytopenia [Unknown]
  - Transaminases increased [Unknown]
  - Staphylococcal infection [Unknown]
  - Hypophagia [Unknown]

NARRATIVE: CASE EVENT DATE: 20160107
